FAERS Safety Report 5929755-1 (Version None)
Quarter: 2008Q4

REPORT INFORMATION
  Report Type: 
  Country: None (occurrence: None)
  Receive Date: 20081024
  Receipt Date: 20081016
  Transmission Date: 20090506
  Serious: Yes (Other)
  Sender: FDA-Public Use
  Company Number: US-JNJFOC-20080802688

PATIENT
  Sex: Male
  Weight: 69.85 kg

DRUGS (4)
  1. INVEGA [Suspect]
     Indication: PARANOIA
     Route: 048
  2. INVEGA [Suspect]
     Indication: AGITATION
     Route: 048
  3. LEXAPRO [Concomitant]
     Indication: DEPRESSION
  4. REMERON [Concomitant]
     Indication: DEPRESSION

REACTIONS (3)
  - BLOOD GLUCOSE INCREASED [None]
  - HYPONATRAEMIA [None]
  - MENTAL STATUS CHANGES [None]
